FAERS Safety Report 18660226 (Version 1)
Quarter: 2020Q4

REPORT INFORMATION
  Report Type: Report from Study
  Country: NL (occurrence: NL)
  Receive Date: 20201224
  Receipt Date: 20201224
  Transmission Date: 20210114
  Serious: Yes (Hospitalization)
  Sender: FDA-Public Use
  Company Number: NL-ROCHE-2735600

PATIENT
  Age: 49 Year
  Sex: Male

DRUGS (2)
  1. PERTUZUMAB. [Suspect]
     Active Substance: PERTUZUMAB
     Indication: NON-SMALL CELL LUNG CANCER
     Dosage: MOST RECENT TREATMENT AND ADMINISTRATION DOSE PRIOR TO SAE: 13/AUG/2020
     Route: 042
     Dates: start: 20170803
  2. TRASTUZUMAB. [Suspect]
     Active Substance: TRASTUZUMAB
     Indication: NON-SMALL CELL LUNG CANCER
     Dosage: MOST RECENT TREATMENT AND ADMINISTRATION DOSE PRIOR TO SAE: 13/AUG/2020
     Route: 042
     Dates: start: 20170803

REACTIONS (1)
  - Pneumothorax [Recovered/Resolved]

NARRATIVE: CASE EVENT DATE: 20201123
